FAERS Safety Report 15206947 (Version 1)
Quarter: 2018Q3

REPORT INFORMATION
  Report Type: Spontaneous
  Country: US (occurrence: US)
  Receive Date: 20180727
  Receipt Date: 20180727
  Transmission Date: 20181010
  Serious: No
  Sender: FDA-Public Use
  Company Number: US-BAUSCH-BL-2018-017823

PATIENT
  Age: 21 Year
  Sex: Female
  Weight: 63.56 kg

DRUGS (5)
  1. KEPPRA [Concomitant]
     Active Substance: LEVETIRACETAM
     Indication: SEVERE MYOCLONIC EPILEPSY OF INFANCY
     Dosage: SINCE SHE WAS 6 YEARS OLD, IN THE EVENING
     Route: 048
  2. DIAZEPAM. [Suspect]
     Active Substance: DIAZEPAM
     Indication: SEVERE MYOCLONIC EPILEPSY OF INFANCY
     Dosage: SINGLE; THREE TIMES IN THREE MONTHS
     Route: 054
     Dates: start: 201804, end: 201807
  3. ONFI [Concomitant]
     Active Substance: CLOBAZAM
     Indication: SEVERE MYOCLONIC EPILEPSY OF INFANCY
     Dosage: 10 MG, IN MORNING AND 15 MG IN EVENING
     Route: 048
  4. DIASTAT [Suspect]
     Active Substance: DIAZEPAM
     Indication: SEVERE MYOCLONIC EPILEPSY OF INFANCY
     Dosage: AS NEEDED; (SINCE PATIENT WAS 3 YEARS OLD)
     Route: 065
     Dates: end: 201804
  5. FELBATOL [Concomitant]
     Active Substance: FELBAMATE
     Indication: SEVERE MYOCLONIC EPILEPSY OF INFANCY
     Dosage: FOR YEARS
     Route: 048

REACTIONS (4)
  - Eye swelling [Recovering/Resolving]
  - Lip swelling [Recovering/Resolving]
  - Product substitution issue [Unknown]
  - Swelling face [Recovering/Resolving]

NARRATIVE: CASE EVENT DATE: 201804
